FAERS Safety Report 5315858-1 (Version None)
Quarter: 2007Q2

REPORT INFORMATION
  Report Type: 
  Country: None (occurrence: None)
  Receive Date: 20070503
  Receipt Date: 20070419
  Transmission Date: 20071010
  Serious: Yes (Death)
  Sender: FDA-Public Use
  Company Number: ES-GENENTECH-240797

PATIENT
  Sex: Male
  Weight: 71 kg

DRUGS (3)
  1. BEVACIZUMAB [Suspect]
     Indication: COLON CANCER
     Dosage: 500 MG, Q3W
     Route: 042
     Dates: start: 20070123
  2. CAPECITABINE [Suspect]
     Indication: COLON CANCER
     Dosage: 3600 MG, UNK
     Dates: start: 20070123
  3. OXALIPLATIN [Suspect]
     Indication: COLON CANCER
     Dosage: 225 MG, Q3W
     Route: 042
     Dates: start: 20070123

REACTIONS (1)
  - DEATH [None]
